FAERS Safety Report 6199879-5 (Version None)
Quarter: 2009Q2

REPORT INFORMATION
  Report Type: 
  Country: None (occurrence: None)
  Receive Date: 20090522
  Receipt Date: 20080618
  Transmission Date: 20091009
  Serious: Yes (Hospitalization)
  Sender: FDA-Public Use
  Company Number: US-ALEXION-A200700071

PATIENT
  Sex: Female

DRUGS (18)
  1. SOLIRIS [Suspect]
     Indication: PAROXYSMAL NOCTURNAL HAEMOGLOBINURIA
     Route: 042
     Dates: start: 20070710, end: 20070710
  2. SOLIRIS [Suspect]
     Route: 042
     Dates: start: 20070717, end: 20070717
  3. SOLIRIS [Suspect]
     Route: 042
     Dates: start: 20070724, end: 20070724
  4. SOLIRIS [Suspect]
     Route: 042
     Dates: start: 20070731, end: 20070731
  5. SOLIRIS [Suspect]
     Route: 042
     Dates: start: 20070807, end: 20070807
  6. SOLIRIS [Suspect]
     Route: 042
     Dates: start: 20070821, end: 20070821
  7. SOLIRIS [Suspect]
     Route: 042
     Dates: start: 20070925, end: 20070925
  8. SOLIRIS [Suspect]
     Route: 042
     Dates: start: 20080401, end: 20080401
  9. SOLIRIS [Suspect]
     Route: 042
     Dates: start: 20080415, end: 20080415
  10. SOLIRIS [Suspect]
     Route: 042
     Dates: start: 20080429, end: 20080429
  11. SOLIRIS [Suspect]
     Route: 042
     Dates: start: 20080519, end: 20080519
  12. SOLIRIS [Suspect]
     Route: 042
     Dates: start: 20080602, end: 20080602
  13. SOLIRIS [Suspect]
     Route: 042
     Dates: start: 20080612, end: 20080612
  14. NORVASC [Concomitant]
     Dosage: UNK, QD
     Route: 048
  15. EFFEXOR [Concomitant]
     Dosage: 75 MG, QD
     Route: 048
  16. ALBUTEROL [Concomitant]
     Dosage: UNK, EVERY SIX HOURS
     Route: 048
  17. PREDNISONE [Concomitant]
     Dosage: 10 MG, QD
     Route: 048
  18. PHENERGAN HCL [Concomitant]
     Indication: PAIN
     Dosage: UNK, PRN
     Route: 048

REACTIONS (3)
  - ABDOMINAL PAIN [None]
  - ADVERSE EVENT [None]
  - LIVER DISORDER [None]
